FAERS Safety Report 7763548-8 (Version None)
Quarter: 2011Q3

REPORT INFORMATION
  Report Type: 
  Country: None (occurrence: None)
  Receive Date: 20110920
  Receipt Date: 20110907
  Transmission Date: 20111222
  Serious: Yes (Hospitalization)
  Sender: FDA-Public Use
  Company Number: US-RB-032181-11

PATIENT
  Age: 58 Year
  Sex: Male

DRUGS (2)
  1. SUBOXONE [Suspect]
     Indication: PRODUCT USED FOR UNKNOWN INDICATION
     Dosage: UNKNOWN DOSE
     Route: 060
  2. SUBOXONE [Suspect]
     Dosage: UNKNOWN DOSE
     Route: 060

REACTIONS (2)
  - PANCREATITIS [None]
  - ANXIETY [None]
